FAERS Safety Report 9982276 (Version 1)
Quarter: 2014Q1

REPORT INFORMATION
  Report Type: Spontaneous
  Country: US (occurrence: US)
  Receive Date: 20140307
  Receipt Date: 20140307
  Transmission Date: 20141002
  Serious: No
  Sender: FDA-Public Use
  Company Number: US-ABBVIE-13P-163-1178040-00

PATIENT
  Age: 26 Year
  Sex: Female
  Weight: 88.53 kg

DRUGS (6)
  1. HUMIRA [Suspect]
     Indication: COLITIS ULCERATIVE
     Dates: start: 201311, end: 201311
  2. HUMIRA [Suspect]
  3. UNKNOWN MEDICATION [Concomitant]
     Indication: COUGH
     Dates: start: 20131207
  4. COUGH [Concomitant]
     Indication: COUGH
     Dates: start: 20131207
  5. UNKNOWN MEDICATION [Concomitant]
     Indication: DYSPEPSIA
  6. PREDNISONE [Concomitant]
     Indication: COLITIS ULCERATIVE

REACTIONS (2)
  - Nasopharyngitis [Not Recovered/Not Resolved]
  - Headache [Not Recovered/Not Resolved]
